FAERS Safety Report 15602454 (Version 1)
Quarter: 2018Q4

REPORT INFORMATION
  Report Type: Spontaneous
  Country: US (occurrence: US)
  Receive Date: 20181109
  Receipt Date: 20181109
  Transmission Date: 20190205
  Serious: No
  Sender: FDA-Public Use
  Company Number: US-UPSHER-SMITH LABORATORIES, LLC-2017USL00267

PATIENT
  Sex: Female

DRUGS (4)
  1. WARFARIN SODIUM. [Suspect]
     Active Substance: WARFARIN SODIUM
     Indication: THROMBOSIS
     Dosage: UNK
     Dates: start: 2003
  2. JANTOVEN [Suspect]
     Active Substance: WARFARIN SODIUM
     Dosage: 4.5 MG, 1X/WEEK ON MONDAYS
  3. ALLOPURINOL. [Suspect]
     Active Substance: ALLOPURINOL
  4. JANTOVEN [Suspect]
     Active Substance: WARFARIN SODIUM
     Dosage: 3 MG, 6X/WEEK

REACTIONS (2)
  - Rash [Not Recovered/Not Resolved]
  - Hypersensitivity [Not Recovered/Not Resolved]

NARRATIVE: CASE EVENT DATE: 2003
